FAERS Safety Report 4441539-2 (Version None)
Quarter: 2004Q3

REPORT INFORMATION
  Report Type: 
  Country: None (occurrence: None)
  Receive Date: 20040728
  Receipt Date: 20040511
  Transmission Date: 20050211
  Serious: No
  Sender: FDA-Public Use
  Company Number: USA040567238

PATIENT
  Age: 39 Year
  Sex: Male

DRUGS (1)
  1. STRATTERA [Suspect]
     Dosage: 40 MG DAY
     Dates: start: 20040501

REACTIONS (6)
  - AGGRESSION [None]
  - HEADACHE [None]
  - NAUSEA [None]
  - SEXUAL DYSFUNCTION [None]
  - URINARY HESITATION [None]
  - VOMITING [None]
